FAERS Safety Report 6299867-4 (Version None)
Quarter: 2009Q3

REPORT INFORMATION
  Report Type: 
  Country: None (occurrence: None)
  Receive Date: 20090804
  Receipt Date: 20090729
  Transmission Date: 20100115
  Serious: Yes (Death)
  Sender: FDA-Public Use
  Company Number: 2009US002669

PATIENT
  Sex: Female

DRUGS (12)
  1. PROGRAF [Suspect]
     Indication: HEART TRANSPLANT
     Dosage: 2 MG, BID; 5 MG, BID
  2. AMOXIL [Concomitant]
  3. ASPIRIN [Concomitant]
  4. LIPITOR [Concomitant]
  5. CYTOXAN [Concomitant]
  6. LASIX [Concomitant]
  7. ENALAPRIL MALEATE [Concomitant]
  8. MAGNESIUM OXIDE (MAGNESIUMOXIDE) [Concomitant]
  9. PREDNISONE TAB [Concomitant]
  10. ZANTAC [Concomitant]
  11. ALDACTONE [Concomitant]
  12. SEPTRA [Concomitant]

REACTIONS (2)
  - CARDIAC ARREST [None]
  - HEART TRANSPLANT REJECTION [None]
